FAERS Safety Report 13848508 (Version 1)
Quarter: 2017Q3

REPORT INFORMATION
  Report Type: Spontaneous
  Country: US (occurrence: US)
  Receive Date: 20170809
  Receipt Date: 20170809
  Transmission Date: 20171127
  Serious: Yes (Other)
  Sender: FDA-Public Use
  Company Number: US-ASTRAZENECA-2014SE99430

PATIENT
  Age: 20 Year
  Sex: Male
  Weight: 36 kg

DRUGS (8)
  1. SEROQUEL [Suspect]
     Active Substance: QUETIAPINE FUMARATE
     Indication: BIPOLAR DISORDER
     Route: 048
     Dates: start: 201606
  2. SEROQUEL [Suspect]
     Active Substance: QUETIAPINE FUMARATE
     Indication: BIPOLAR DISORDER
     Route: 048
  3. SEROQUEL [Suspect]
     Active Substance: QUETIAPINE FUMARATE
     Indication: BIPOLAR DISORDER
     Route: 048
  4. SEROQUEL [Suspect]
     Active Substance: QUETIAPINE FUMARATE
     Indication: BIPOLAR DISORDER
     Route: 048
     Dates: start: 201703
  5. SEROQUEL [Suspect]
     Active Substance: QUETIAPINE FUMARATE
     Indication: BIPOLAR DISORDER
     Route: 048
     Dates: start: 2008
  6. SEROQUEL [Suspect]
     Active Substance: QUETIAPINE FUMARATE
     Indication: BIPOLAR DISORDER
     Route: 048
     Dates: start: 201707
  7. ATIVAN [Concomitant]
     Active Substance: LORAZEPAM
     Indication: ANXIETY
     Dosage: 2.0MG AS REQUIRED
     Route: 048
  8. HALDOL [Concomitant]
     Active Substance: HALOPERIDOL
     Dosage: AS REQUIRED
     Route: 048

REACTIONS (12)
  - Sleep paralysis [Unknown]
  - Emotional poverty [Unknown]
  - Abnormal dreams [Unknown]
  - Restless legs syndrome [Unknown]
  - Intentional product misuse [Unknown]
  - Akathisia [Unknown]
  - Catatonia [Unknown]
  - Anxiety [Unknown]
  - Schizoaffective disorder [Unknown]
  - Thinking abnormal [Unknown]
  - Depression [Unknown]
  - Tension [Unknown]

NARRATIVE: CASE EVENT DATE: 2008
